APPROVED DRUG PRODUCT: LAMIVUDINE AND TENOFOVIR DISOPROXIL FUMARATE
Active Ingredient: LAMIVUDINE; TENOFOVIR DISOPROXIL FUMARATE
Strength: 300MG;300MG
Dosage Form/Route: TABLET;ORAL
Application: N022344 | Product #001
Applicant: AUROBINDO PHARMA LTD
Approved: May 15, 2018 | RLD: Yes | RS: No | Type: DISCN